FAERS Safety Report 21701423 (Version 1)
Quarter: 2022Q4

REPORT INFORMATION
  Report Type: Spontaneous
  Country: US (occurrence: None)
  Receive Date: 20221207
  Receipt Date: 20221207
  Transmission Date: 20230113
  Serious: No
  Sender: FDA-Public Use
  Company Number: None

PATIENT
  Sex: Female
  Weight: 66.22 kg

DRUGS (9)
  1. LENALIDOMIDE [Suspect]
     Active Substance: LENALIDOMIDE
     Indication: Plasma cell myeloma
     Dosage: FREQUENCY : DAILY;?
     Route: 048
     Dates: start: 202211
  2. EUTHYROX [Concomitant]
     Active Substance: LEVOTHYROXINE SODIUM
  3. FAMOTIDINE [Concomitant]
     Active Substance: FAMOTIDINE
  4. FERROUS SULFATE [Concomitant]
     Active Substance: FERROUS SULFATE
  5. FLUTICASONE [Concomitant]
     Active Substance: FLUTICASONE
  6. GUAIFENESIN [Concomitant]
     Active Substance: GUAIFENESIN
  7. METOPROLOL [Concomitant]
     Active Substance: METOPROLOL
  8. SIMVASTATIN [Concomitant]
     Active Substance: SIMVASTATIN
  9. VITAMIN D3 [Concomitant]
     Active Substance: CHOLECALCIFEROL

REACTIONS (1)
  - COVID-19 [None]
